FAERS Safety Report 7860443-0 (Version None)
Quarter: 2011Q4

REPORT INFORMATION
  Report Type: 
  Country: None (occurrence: None)
  Receive Date: 20111027
  Receipt Date: 20111024
  Transmission Date: 20120403
  Serious: Yes (Hospitalization, Other)
  Sender: FDA-Public Use
  Company Number: PHHY2011TR30117

PATIENT
  Sex: Female
  Weight: 30 kg

DRUGS (3)
  1. FERRIPROX [Concomitant]
     Indication: BONE MARROW TRANSPLANT
     Dosage: 100 MG,
  2. EXJADE [Suspect]
     Indication: THALASSAEMIA BETA
     Dosage: 1000 MG
     Route: 048
     Dates: start: 20080101
  3. DESFERAL [Concomitant]
     Indication: BONE MARROW TRANSPLANT
     Dosage: 0.5 MG,

REACTIONS (3)
  - HEPATIC CIRRHOSIS [None]
  - FIBROSIS [None]
  - SERUM FERRITIN ABNORMAL [None]
